FAERS Safety Report 5928502-7 (Version None)
Quarter: 2008Q4

REPORT INFORMATION
  Report Type: 
  Country: None (occurrence: None)
  Receive Date: 20081023
  Receipt Date: 20081013
  Transmission Date: 20090506
  Serious: Yes (Other)
  Sender: FDA-Public Use
  Company Number: FR-ELI_LILLY_AND_COMPANY-FR200809005253

PATIENT
  Age: 58 Year
  Sex: Female
  Weight: 90 kg

DRUGS (12)
  1. BYETTA [Suspect]
     Indication: TYPE 2 DIABETES MELLITUS
     Dosage: 5 UG, 2/D
     Route: 058
     Dates: start: 20080605, end: 20080610
  2. INSULIN [Concomitant]
     Indication: TYPE 2 DIABETES MELLITUS
     Dosage: UNK, UNKNOWN
     Route: 065
  3. INSULIN [Concomitant]
     Dosage: UNK, UNKNOWN
     Route: 065
  4. GLUCOPHAGE [Concomitant]
     Dosage: UNK, UNKNOWN
     Route: 065
  5. SULFONAMIDES [Concomitant]
     Dosage: UNK, UNKNOWN
     Route: 065
  6. STAGID [Concomitant]
     Indication: TYPE 2 DIABETES MELLITUS
     Dosage: 700 MG, 3/D
     Route: 048
     Dates: start: 19970101
  7. DAONIL [Concomitant]
     Indication: TYPE 2 DIABETES MELLITUS
     Dosage: 5 MG, 3/D
     Route: 048
  8. ATACAND [Concomitant]
     Dosage: 4 MG, UNKNOWN
     Route: 048
     Dates: start: 20040101
  9. TENORMIN [Concomitant]
     Dosage: 50 MG, UNKNOWN
     Route: 048
  10. ASPEGIC 325 [Concomitant]
     Dosage: 250 MG, UNKNOWN
     Route: 048
  11. ANAFRANIL [Concomitant]
     Dosage: UNK, UNKNOWN
     Route: 065
  12. TEMESTA [Concomitant]
     Dosage: 3 MG, DAILY (1/D)
     Route: 048

REACTIONS (1)
  - FACE OEDEMA [None]
